FAERS Safety Report 17880438 (Version 1)
Quarter: 2020Q2

REPORT INFORMATION
  Report Type: Spontaneous
  Country: US (occurrence: US)
  Receive Date: 20200610
  Receipt Date: 20200610
  Transmission Date: 20200714
  Serious: Yes (Hospitalization)
  Sender: FDA-Public Use
  Company Number: US-GLOBAL BLOOD THERAPEUTICS INC-US-GBT-20-01370

PATIENT
  Sex: Female

DRUGS (1)
  1. OXBRYTA [Suspect]
     Active Substance: VOXELOTOR
     Indication: SICKLE CELL DISEASE
     Route: 048
     Dates: start: 202001, end: 202003

REACTIONS (6)
  - Nausea [Unknown]
  - Therapy non-responder [Unknown]
  - Vomiting [Unknown]
  - Dizziness [Unknown]
  - Sickle cell anaemia with crisis [Unknown]
  - Rash [Unknown]

NARRATIVE: CASE EVENT DATE: 2020
